FAERS Safety Report 8112860-1 (Version None)
Quarter: 2012Q1

REPORT INFORMATION
  Report Type: 
  Country: None (occurrence: None)
  Receive Date: 20120203
  Receipt Date: 20120201
  Transmission Date: 20120608
  Serious: Yes (Death)
  Sender: FDA-Public Use
  Company Number: RU-ABBOTT-12P-251-0899756-00

PATIENT
  Age: 25 Year
  Sex: Male

DRUGS (1)
  1. HUMIRA [Suspect]
     Indication: CROHN'S DISEASE
     Dosage: SINGLE INJECTION
     Route: 058
     Dates: start: 20111127

REACTIONS (3)
  - PULMONARY TUBERCULOSIS [None]
  - RESPIRATORY TRACT INFECTION VIRAL [None]
  - MULTI-ORGAN FAILURE [None]
